FAERS Safety Report 8766469 (Version 1)
Quarter: 2012Q4

REPORT INFORMATION
  Report Type: 
  Country: HK (occurrence: HK)
  Receive Date: 20120904
  Receipt Date: 20120904
  Transmission Date: 20130627
  Serious: Yes (Other)
  Sender: FDA-Public Use
  Company Number: HK-ROCHE-1110641

PATIENT
  Age: 11 Year
  Sex: Female

DRUGS (14)
  1. MYCOPHENOLATE MOFETIL [Suspect]
     Indication: PROPHYLAXIS AGAINST TRANSPLANT REJECTION
     Route: 065
  2. GANCICLOVIR [Suspect]
     Indication: PROPHYLAXIS
     Route: 065
  3. METHYLPREDNISOLONE [Suspect]
     Indication: PROPHYLAXIS AGAINST TRANSPLANT REJECTION
     Route: 065
  4. CYCLOSPORINE A [Suspect]
     Indication: PROPHYLAXIS AGAINST GRAFT VERSUS HOST DISEASE
     Route: 065
  5. TACROLIMUS [Suspect]
     Indication: PROPHYLAXIS AGAINST TRANSPLANT REJECTION
  6. FLUDARABINE [Concomitant]
     Route: 065
  7. CYCLOPHOSPHAMIDE [Concomitant]
     Route: 065
  8. THYMOGLOBULIN [Concomitant]
     Route: 065
  9. METHOTREXATE [Concomitant]
     Indication: PROPHYLAXIS AGAINST GRAFT VERSUS HOST DISEASE
     Dosage: On day 1 and 10
     Route: 065
  10. METHOTREXATE [Concomitant]
     Dosage: On day 3,6 and 11
     Route: 065
  11. ACYCLOVIR [Concomitant]
     Indication: PROPHYLAXIS
     Route: 065
  12. FOSCARNET [Concomitant]
     Route: 065
  13. CIDOFOVIR [Concomitant]
     Route: 065
  14. BUDESONIDE [Concomitant]

REACTIONS (3)
  - Encephalitis cytomegalovirus [Recovering/Resolving]
  - Cytomegalovirus chorioretinitis [Recovered/Resolved]
  - Drug resistance [Unknown]
